FAERS Safety Report 13945880 (Version 2)
Quarter: 2019Q3

REPORT INFORMATION
  Report Type: Spontaneous
  Country: US (occurrence: US)
  Receive Date: 20170907
  Receipt Date: 20190903
  Transmission Date: 20191004
  Serious: No
  Sender: FDA-Public Use
  Company Number: US-LUPIN PHARMACEUTICALS INC.-2017-02341

PATIENT
  Sex: Female
  Weight: 57.15 kg

DRUGS (2)
  1. CLONIDINE. [Concomitant]
     Active Substance: CLONIDINE
     Indication: PRODUCT USED FOR UNKNOWN INDICATION
     Dosage: UNK
     Route: 065
  2. AMLODIPINE BESYLATE TABLETS USP, 5 MG [Suspect]
     Active Substance: AMLODIPINE BESYLATE
     Indication: HYPERTENSION
     Dosage: 5 MG, ONCE A DAY IN MORNING
     Route: 048

REACTIONS (12)
  - Alopecia [Unknown]
  - Asthma [Unknown]
  - Skin exfoliation [Unknown]
  - Vein disorder [Unknown]
  - Asthenia [Unknown]
  - Limb discomfort [Unknown]
  - Acrochordon [Unknown]
  - Joint swelling [Unknown]
  - Anxiety [Unknown]
  - Nervousness [Unknown]
  - Chest pain [Recovered/Resolved]
  - Tremor [Unknown]
